FAERS Safety Report 6908264-7 (Version None)
Quarter: 2010Q3

REPORT INFORMATION
  Report Type: 
  Country: None (occurrence: None)
  Receive Date: 20100805
  Receipt Date: 20100713
  Transmission Date: 20110219
  Serious: Yes (Hospitalization)
  Sender: FDA-Public Use
  Company Number: US-ROCHE-713834

PATIENT
  Sex: Male
  Weight: 68.7 kg

DRUGS (11)
  1. BEVACIZUMAB [Suspect]
     Route: 042
     Dates: start: 20100322
  2. BEVACIZUMAB [Suspect]
     Route: 042
     Dates: start: 20100615
  3. PEMETREXED [Suspect]
     Route: 042
     Dates: start: 20100322
  4. PEMETREXED [Suspect]
     Route: 042
     Dates: start: 20100524
  5. CARBOPLATIN [Suspect]
     Dosage: DOSE REPORTED AS 6 D/F
     Route: 042
     Dates: start: 20100322
  6. CARBOPLATIN [Suspect]
     Dosage: DOSE: 4.5 DOSE FORM
     Route: 042
     Dates: start: 20100524, end: 20100524
  7. ACID FOLIC [Concomitant]
  8. PERCOCET [Concomitant]
  9. PHENERGAN [Concomitant]
  10. VITAMIN B-12 [Concomitant]
     Dates: start: 20100209
  11. DEXMETHSONE [Concomitant]
     Dates: start: 20100223

REACTIONS (1)
  - HAEMOPTYSIS [None]
